FAERS Safety Report 5797545-9 (Version None)
Quarter: 2008Q2

REPORT INFORMATION
  Report Type: 
  Country: None (occurrence: None)
  Receive Date: 20080618
  Receipt Date: 20070926
  Transmission Date: 20081010
  Serious: Yes (Other)
  Sender: FDA-Public Use
  Company Number: 200716851US

PATIENT
  Age: 64 Year
  Sex: Female

DRUGS (5)
  1. LANTUS [Suspect]
     Indication: TYPE 1 DIABETES MELLITUS
     Dates: start: 20070901
  2. SYMLIN [Suspect]
     Dosage: TID
     Dates: start: 20070908
  3. SYMLIN [Suspect]
     Dosage: TID
     Dates: start: 20070905, end: 20070907
  4. HUMALOG [Suspect]
     Dates: start: 20070905, end: 20070912
  5. HUMALOG [Suspect]
     Dates: start: 20070913

REACTIONS (2)
  - BLOOD GLUCOSE INCREASED [None]
  - HYPOGLYCAEMIA [None]
